FAERS Safety Report 24919563 (Version 1)
Quarter: 2025Q1

REPORT INFORMATION
  Report Type: Spontaneous
  Country: US (occurrence: US)
  Receive Date: 20250204
  Receipt Date: 20250204
  Transmission Date: 20250409
  Serious: No
  Sender: ENDO
  Company Number: ENDG24-01685

PATIENT
  Age: 68 Year
  Sex: Female

DRUGS (2)
  1. BUPROPION HYDROCHLORIDE [Suspect]
     Active Substance: BUPROPION HYDROCHLORIDE
     Indication: Depression
     Dosage: 300 MILLIGRAM, QOD
     Route: 065
  2. BUPROPION HYDROCHLORIDE [Suspect]
     Active Substance: BUPROPION HYDROCHLORIDE
     Indication: Eating disorder
     Route: 065
     Dates: start: 2016

REACTIONS (3)
  - Eating disorder [Unknown]
  - Intentional product use issue [Not Recovered/Not Resolved]
  - Product availability issue [Not Recovered/Not Resolved]
